FAERS Safety Report 14595354 (Version 1)
Quarter: 2018Q1

REPORT INFORMATION
  Report Type: Report from Study
  Country: DE (occurrence: DE)
  Receive Date: 20180302
  Receipt Date: 20180302
  Transmission Date: 20180509
  Serious: Yes (Hospitalization)
  Sender: FDA-Public Use
  Company Number: DE-SEATTLE GENETICS-2018SGN00388

PATIENT
  Sex: Male

DRUGS (9)
  1. DEXAMETHASONE. [Suspect]
     Active Substance: DEXAMETHASONE
     Indication: HODGKIN^S DISEASE
     Dosage: UNK
     Route: 065
  2. DACARBAZINE. [Suspect]
     Active Substance: DACARBAZINE
     Indication: HODGKIN^S DISEASE
     Dosage: UNK
     Route: 065
  3. ONDANSETRON [Concomitant]
     Active Substance: ONDANSETRON
     Dosage: 8 MG, UNK
     Route: 065
     Dates: start: 20180221, end: 20180222
  4. PANTOPRAZOLE SODIUM SESQUIHYDRATE [Concomitant]
     Active Substance: PANTOPRAZOLE SODIUM
     Dosage: 40 MG, UNK
     Route: 065
     Dates: start: 20180221, end: 20180222
  5. SULFAMETHOXAZOLE, TRIMETHOPRIM [Concomitant]
     Active Substance: SULFAMETHOXAZOLE\TRIMETHOPRIM
     Dosage: 960 MG, 3/WEEK
     Route: 065
     Dates: start: 20180214, end: 20180221
  6. CYCLOPHOSPHAMIDE. [Suspect]
     Active Substance: CYCLOPHOSPHAMIDE
     Indication: HODGKIN^S DISEASE
     Dosage: UNK
     Route: 065
  7. BRENTUXIMAB VEDOTIN-MPI [Suspect]
     Active Substance: BRENTUXIMAB VEDOTIN
     Indication: HODGKIN^S DISEASE
     Route: 065
  8. ETOPOSIDE. [Suspect]
     Active Substance: ETOPOSIDE
     Indication: HODGKIN^S DISEASE
     Dosage: UNK
     Route: 065
  9. DOXORUBICIN [Suspect]
     Active Substance: DOXORUBICIN
     Indication: HODGKIN^S DISEASE
     Dosage: UNK
     Route: 065

REACTIONS (1)
  - Gastroenteritis [Recovered/Resolved]

NARRATIVE: CASE EVENT DATE: 20180222
